FAERS Safety Report 11103389 (Version 1)
Quarter: 2015Q2

REPORT INFORMATION
  Report Type: Spontaneous
  Country: US (occurrence: None)
  Receive Date: 20150507
  Receipt Date: 20150507
  Transmission Date: 20150821
  Serious: Yes (Life-Threatening)
  Sender: FDA-Public Use
  Company Number: FR-SEPTODONT-201502811

PATIENT
  Age: 8 Year
  Sex: Male

DRUGS (1)
  1. SEPTANEST 40 MG/ML ADRENALINE AU 1/100.000 ARTICAINE HDYROCHLORIDE; EPINEPHRINE TARTRATE [Suspect]
     Active Substance: ARTICAINE HYDROCHLORIDE\EPINEPHRINE BITARTRATE
     Indication: LOCAL ANAESTHESIA
     Route: 004
     Dates: start: 20150104

REACTIONS (2)
  - Loss of consciousness [None]
  - Malaise [None]

NARRATIVE: CASE EVENT DATE: 20150104
